FAERS Safety Report 6552221-X (Version None)
Quarter: 2010Q1

REPORT INFORMATION
  Report Type: 
  Country: None (occurrence: None)
  Receive Date: 20100126
  Receipt Date: 20100118
  Transmission Date: 20100710
  Serious: Yes (Hospitalization)
  Sender: FDA-Public Use
  Company Number: FR-JNJFOC-20100107265

PATIENT
  Age: 42 Year
  Sex: Male

DRUGS (4)
  1. REMICADE [Suspect]
     Indication: ANKYLOSING SPONDYLITIS
     Route: 042
  2. DI-ANTALVIC [Concomitant]
     Dosage: ^6 DF^
     Route: 048
  3. NEXEN [Concomitant]
     Dosage: ^2 DF^
  4. NEXIUM [Concomitant]
     Dosage: ^1 DF^

REACTIONS (4)
  - CHEST PAIN [None]
  - DIZZINESS [None]
  - DRUG INTOLERANCE [None]
  - MALAISE [None]
